FAERS Safety Report 6279999-7 (Version None)
Quarter: 2009Q3

REPORT INFORMATION
  Report Type: 
  Country: None (occurrence: None)
  Receive Date: 20090723
  Receipt Date: 20090723
  Transmission Date: 20100115
  Serious: Yes (Other)
  Sender: FDA-Public Use
  Company Number: US-ABBOTT-09P-163-0584083-00

PATIENT
  Sex: Female
  Weight: 72.64 kg

DRUGS (9)
  1. HUMIRA [Suspect]
     Indication: PSORIASIS
     Route: 058
     Dates: start: 20070101, end: 20080801
  2. HUMIRA [Suspect]
     Route: 058
     Dates: start: 20081101, end: 20090401
  3. TRAMADOL [Concomitant]
     Indication: PAIN
     Route: 048
  4. WELLBUTRIN XL [Concomitant]
     Indication: DEPRESSION
     Route: 048
  5. DEPLIN [Concomitant]
     Indication: DEPRESSION
     Dosage: VIT B9
     Route: 048
  6. CLONAZEPAM [Concomitant]
     Indication: ANXIOLYTIC THERAPY
     Route: 048
  7. LYRICA [Concomitant]
     Indication: NEURALGIA
     Route: 048
  8. FLEXERIL [Concomitant]
     Indication: PAIN
     Route: 048
  9. PERCOCET [Concomitant]
     Indication: PAIN
     Dosage: 5/325

REACTIONS (7)
  - ARTHRALGIA [None]
  - INCORRECT DRUG ADMINISTRATION DURATION [None]
  - JOINT SWELLING [None]
  - MUSCULAR WEAKNESS [None]
  - PSORIASIS [None]
  - PSORIATIC ARTHROPATHY [None]
  - TREATMENT NONCOMPLIANCE [None]
